FAERS Safety Report 5457965-9 (Version None)
Quarter: 2007Q3

REPORT INFORMATION
  Report Type: 
  Country: None (occurrence: None)
  Receive Date: 20070917
  Receipt Date: 20070904
  Transmission Date: 20080115
  Serious: Yes (Other)
  Sender: FDA-Public Use
  Company Number: US021185

PATIENT
  Age: 57 Year
  Sex: Female

DRUGS (1)
  1. ACTIQ [Suspect]
     Dosage: BUCCAL
     Route: 002
     Dates: start: 20070515

REACTIONS (5)
  - INTENTIONAL DRUG MISUSE [None]
  - LETHARGY [None]
  - RESPIRATORY DEPRESSION [None]
  - SOMNOLENCE [None]
  - X-RAY ABNORMAL [None]
